FAERS Safety Report 7707514-7 (Version None)
Quarter: 2011Q3

REPORT INFORMATION
  Report Type: 
  Country: None (occurrence: None)
  Receive Date: 20110824
  Receipt Date: 20110819
  Transmission Date: 20111222
  Serious: Yes (Hospitalization, Disabling)
  Sender: FDA-Public Use
  Company Number: DE-BAYER-2011-045624

PATIENT
  Age: 51 Year
  Sex: Female

DRUGS (1)
  1. BETASERON [Suspect]
     Indication: SECONDARY PROGRESSIVE MULTIPLE SCLEROSIS
     Dosage: UNK
     Route: 058
     Dates: end: 20110401

REACTIONS (12)
  - MULTIPLE SCLEROSIS [None]
  - DECREASED APPETITE [None]
  - THROMBOCYTOPENIA [None]
  - HYPERTENSION [None]
  - QUADRIPARESIS [None]
  - VISUAL IMPAIRMENT [None]
  - AUTOIMMUNE THYROIDITIS [None]
  - GAIT DISTURBANCE [None]
  - BLOOD BILIRUBIN INCREASED [None]
  - INCREASED TENDENCY TO BRUISE [None]
  - ANAEMIA [None]
  - FATIGUE [None]
